FAERS Safety Report 5923064-2 (Version None)
Quarter: 2008Q4

REPORT INFORMATION
  Report Type: 
  Country: None (occurrence: None)
  Receive Date: 20081018
  Receipt Date: 20081008
  Transmission Date: 20090506
  Serious: Yes (Other)
  Sender: FDA-Public Use
  Company Number: US-PFIZER INC-2008084826

PATIENT
  Sex: Female
  Weight: 59 kg

DRUGS (3)
  1. LIPITOR [Suspect]
     Indication: BLOOD CHOLESTEROL INCREASED
     Dates: end: 20080901
  2. PROCARDIA XL [Concomitant]
  3. NITRO-DUR [Concomitant]
     Route: 062

REACTIONS (8)
  - ABDOMINAL DISCOMFORT [None]
  - AORTIC OCCLUSION [None]
  - CHEST PAIN [None]
  - FATIGUE [None]
  - LETHARGY [None]
  - PAIN IN EXTREMITY [None]
  - RETINAL OPERATION [None]
  - TRANSIENT ISCHAEMIC ATTACK [None]
